FAERS Safety Report 21104399 (Version 1)
Quarter: 2022Q3

REPORT INFORMATION
  Report Type: Report from Study
  Country: IT (occurrence: JP)
  Receive Date: 20220720
  Receipt Date: 20220720
  Transmission Date: 20221027
  Serious: Yes (Other)
  Sender: FDA-Public Use
  Company Number: IT-BAYER-2022A099198

PATIENT
  Age: 78 Year
  Sex: Male
  Weight: 56 kg

DRUGS (11)
  1. LORATADINE [Suspect]
     Active Substance: LORATADINE
  2. NINTEDANIB [Suspect]
     Active Substance: NINTEDANIB
     Indication: Idiopathic pulmonary fibrosis
  3. ESOMEPRAZOLE [Suspect]
     Active Substance: ESOMEPRAZOLE
  4. ISONIAZID\PYRIDOXINE\SULFAMETHOXAZOLE\TRIMETHOPRIM [Suspect]
     Active Substance: ISONIAZID\PYRIDOXINE\SULFAMETHOXAZOLE\TRIMETHOPRIM
  5. SITAGLIPTIN [Suspect]
     Active Substance: SITAGLIPTIN
  6. CYPROHEPTADINE [Suspect]
     Active Substance: CYPROHEPTADINE
  7. AMPHOTERICIN B [Suspect]
     Active Substance: AMPHOTERICIN B
  8. PREDNISOLONE [Concomitant]
     Active Substance: PREDNISOLONE
  9. ALENDRONATE [Concomitant]
     Active Substance: ALENDRONATE SODIUM
  10. EPRAZINONE HYDROCHLORIDE [Concomitant]
     Active Substance: EPRAZINONE HYDROCHLORIDE
  11. GLYCERIN [Concomitant]
     Active Substance: GLYCERIN

REACTIONS (1)
  - Drug-induced liver injury [None]
